FAERS Safety Report 16678409 (Version 1)
Quarter: 2019Q3

REPORT INFORMATION
  Report Type: Spontaneous
  Country: US (occurrence: US)
  Receive Date: 20190806
  Receipt Date: 20190806
  Transmission Date: 20191004
  Serious: Yes (Other)
  Sender: FDA-Public Use
  Company Number: None

PATIENT
  Age: 38 Year
  Sex: Female
  Weight: 65.25 kg

DRUGS (7)
  1. FASENRA [Concomitant]
     Active Substance: BENRALIZUMAB
  2. ADVAIR HFA [Concomitant]
     Active Substance: FLUTICASONE PROPIONATE\SALMETEROL XINAFOATE
  3. EFFEXOR [Concomitant]
     Active Substance: VENLAFAXINE HYDROCHLORIDE
  4. AIMOVIG [Concomitant]
     Active Substance: ERENUMAB-AOOE
  5. SPIRIVA [Concomitant]
     Active Substance: TIOTROPIUM BROMIDE MONOHYDRATE
  6. TROKENDI [Concomitant]
     Active Substance: TOPIRAMATE
  7. FASENRA [Suspect]
     Active Substance: BENRALIZUMAB
     Indication: ASTHMA
     Dosage: ?          QUANTITY:1 INJECTION(S);OTHER FREQUENCY:2 MONTHS;?
     Route: 058
     Dates: start: 20181001

REACTIONS (2)
  - Cryptosporidiosis infection [None]
  - Immunosuppression [None]

NARRATIVE: CASE EVENT DATE: 20190702
